FAERS Safety Report 10409620 (Version 1)
Quarter: 2014Q3

REPORT INFORMATION
  Report Type: Spontaneous
  Country: US (occurrence: None)
  Receive Date: 20140822
  Receipt Date: 20140822
  Transmission Date: 20150326
  Serious: Yes (Other)
  Sender: FDA-Public Use
  Company Number: AUR-APL-2014-08842

PATIENT
  Age: 61 Year
  Sex: Female
  Weight: 64.8 kg

DRUGS (3)
  1. MELOXICAM AUROBINDO TABLETS 7.5 MG (MELOXICAM) TABLET, 7.5MG [Suspect]
     Active Substance: MELOXICAM
     Indication: PAIN
     Route: 048
  2. VICODIN [Suspect]
     Active Substance: ACETAMINOPHEN\HYDROCODONE BITARTRATE
     Indication: OSTEOARTHRITIS
     Route: 048
  3. CHANTIX [Suspect]
     Active Substance: VARENICLINE TARTRATE
     Indication: SMOKING CESSATION THERAPY
     Route: 048
     Dates: start: 20140716

REACTIONS (6)
  - Intentional product misuse [None]
  - Skeletal injury [None]
  - Condition aggravated [None]
  - Renal impairment [None]
  - Bronchitis [None]
  - Drug ineffective [None]
